FAERS Safety Report 7755401-0 (Version None)
Quarter: 2011Q3

REPORT INFORMATION
  Report Type: 
  Country: None (occurrence: None)
  Receive Date: 20110916
  Receipt Date: 20110912
  Transmission Date: 20111222
  Serious: Yes (Hospitalization)
  Sender: FDA-Public Use
  Company Number: US-ABBOTT-11P-163-0841813-00

PATIENT
  Age: 63 Year
  Sex: Female

DRUGS (20)
  1. HUMIRA [Suspect]
     Indication: PSORIATIC ARTHROPATHY
     Dates: start: 20110615
  2. DIOVAN [Concomitant]
     Indication: HYPERTENSION
     Dosage: 320 MG DAILY
  3. NOVOLOG [Concomitant]
     Indication: DIABETES MELLITUS
     Dosage: 40/45/50 DEPENDING ON SLIDING SCALE
  4. FUROSEMIDE [Concomitant]
     Indication: PRODUCT USED FOR UNKNOWN INDICATION
     Dosage: 40 MG EVERY AM
  5. DILTIAZEM [Concomitant]
     Indication: HYPERTENSION
     Dosage: 200 MG DAILY
  6. FUROSEMIDE [Concomitant]
     Dosage: IF LEGS SWOLLEN/1 TAB AT 4PM
  7. ADVAIR DISKUS 100/50 [Concomitant]
     Dosage: 1 PUFF BID
  8. VENTOLIN HFA [Concomitant]
     Indication: CHRONIC OBSTRUCTIVE PULMONARY DISEASE
     Route: 055
  9. ADVAIR DISKUS 100/50 [Concomitant]
     Indication: CHRONIC OBSTRUCTIVE PULMONARY DISEASE
     Dosage: 1 PUFF BID
     Route: 055
  10. LANTUS [Concomitant]
     Indication: DIABETES MELLITUS
     Dosage: IN THE AM AND PM
  11. PREDNISONE [Concomitant]
     Indication: INFLAMMATION
     Dosage: 5 MG DAILY
  12. ADVAIR DISKUS 100/50 [Concomitant]
     Dosage: 1 PUFF BID
  13. LORAZEPAM [Concomitant]
     Dosage: 1 TABLET AT BEDTIME
  14. METHOTREXATE [Concomitant]
     Indication: INFLAMMATION
     Dosage: 8 TABLETS ONCE A WEEK
  15. LEVOTHYROXINE SODIUM [Concomitant]
     Indication: PRODUCT USED FOR UNKNOWN INDICATION
     Dosage: 2 TABLETS 125 MICROGRAMS DAILY
  16. LORAZEPAM [Concomitant]
     Indication: ANXIETY
     Dosage: 1 TABLET AT 1400
  17. ADVAIR DISKUS 100/50 [Concomitant]
     Dosage: EVERY 4 HOURS AS NEEDED
     Route: 055
  18. HUMIRA [Suspect]
     Dates: start: 20110809
  19. FOLIC ACID [Concomitant]
     Indication: PRODUCT USED FOR UNKNOWN INDICATION
  20. FUROSEMIDE [Concomitant]
     Indication: OEDEMA PERIPHERAL
     Dosage: IF LEGS SWOLLEN, 40 MG AT 1600

REACTIONS (12)
  - DYSPNOEA [None]
  - MALAISE [None]
  - PAIN IN EXTREMITY [None]
  - INJECTION SITE PAIN [None]
  - BLOOD POTASSIUM DECREASED [None]
  - PULMONARY CONGESTION [None]
  - RHINORRHOEA [None]
  - GRIP STRENGTH DECREASED [None]
  - PYREXIA [None]
  - VIRAL INFECTION [None]
  - PRODUCTIVE COUGH [None]
  - JOINT STIFFNESS [None]
